FAERS Safety Report 7338215-5 (Version None)
Quarter: 2011Q1

REPORT INFORMATION
  Report Type: 
  Country: None (occurrence: None)
  Receive Date: 20110308
  Receipt Date: 20110301
  Transmission Date: 20110831
  Serious: No
  Sender: FDA-Public Use
  Company Number: US-PFIZER INC-2011044940

PATIENT
  Sex: Female
  Weight: 74 kg

DRUGS (3)
  1. CHANTIX [Suspect]
     Indication: SMOKING CESSATION THERAPY
     Dosage: 0.5 MG, 1X/DAY
     Route: 048
     Dates: start: 20110205, end: 20110201
  2. CHANTIX [Suspect]
     Dosage: 0.5 MG, 2X/DAY
     Dates: start: 20110201, end: 20110201
  3. CHANTIX [Suspect]
     Dosage: 1 MG, 2X/DAY
     Dates: start: 20110201, end: 20110201

REACTIONS (9)
  - DYSPEPSIA [None]
  - NAUSEA [None]
  - ABDOMINAL PAIN UPPER [None]
  - BOWEL MOVEMENT IRREGULARITY [None]
  - WEIGHT INCREASED [None]
  - FLATULENCE [None]
  - CONSTIPATION [None]
  - GASTRIC DILATATION [None]
  - ABDOMINAL DISTENSION [None]
